FAERS Safety Report 24111835 (Version 1)
Quarter: 2024Q3

REPORT INFORMATION
  Report Type: Spontaneous
  Country: CN (occurrence: CN)
  Receive Date: 20240718
  Receipt Date: 20240718
  Transmission Date: 20241016
  Serious: Yes (Life-Threatening, Hospitalization)
  Sender: JOHNSON AND JOHNSON
  Company Number: CN-BAYER-2024A103621

PATIENT
  Age: 77 Year
  Sex: Male
  Weight: 75 kg

DRUGS (7)
  1. XARELTO [Suspect]
     Active Substance: RIVAROXABAN
     Indication: Aortic stent insertion
     Dosage: 10 MG, QD
     Route: 048
     Dates: start: 20240601, end: 20240611
  2. XARELTO [Suspect]
     Active Substance: RIVAROXABAN
     Indication: Carotid artery stent insertion
     Route: 048
  3. XARELTO [Suspect]
     Active Substance: RIVAROXABAN
     Indication: Vascular stent insertion
     Route: 048
  4. XARELTO [Suspect]
     Active Substance: RIVAROXABAN
     Indication: Thrombosis prophylaxis
     Route: 048
  5. ASPIRIN [Suspect]
     Active Substance: ASPIRIN
     Indication: Thrombosis prophylaxis
     Dosage: 100 MG, QD
     Route: 048
     Dates: start: 20240523, end: 20240611
  6. ASPIRIN [Suspect]
     Active Substance: ASPIRIN
     Indication: Antiplatelet therapy
     Route: 065
  7. DALTEPARIN SODIUM [Concomitant]
     Active Substance: DALTEPARIN SODIUM
     Indication: Thrombosis prophylaxis
     Dosage: 5000 IU, QD
     Route: 058
     Dates: start: 20240523, end: 20240531

REACTIONS (3)
  - Platelet count decreased [Recovering/Resolving]
  - Intermittent claudication [Unknown]
  - Off label use [Unknown]

NARRATIVE: CASE EVENT DATE: 20240101
